FAERS Safety Report 18748950 (Version 3)
Quarter: 2021Q1

REPORT INFORMATION
  Report Type: Report from Study
  Country: US (occurrence: US)
  Receive Date: 20210115
  Receipt Date: 20210326
  Transmission Date: 20210419
  Serious: No
  Sender: FDA-Public Use
  Company Number: NVSC2021US008815

PATIENT
  Sex: Female

DRUGS (1)
  1. PIQRAY [Suspect]
     Active Substance: ALPELISIB
     Indication: PRODUCT USED FOR UNKNOWN INDICATION
     Dosage: UNK
     Route: 048

REACTIONS (12)
  - Faeces hard [Unknown]
  - Tenderness [Unknown]
  - Rash macular [Unknown]
  - Stomatitis [Unknown]
  - Oral pain [Unknown]
  - Blood glucose abnormal [Unknown]
  - Erythema [Unknown]
  - Diarrhoea [Unknown]
  - Hyperaesthesia teeth [Unknown]
  - Pain [Unknown]
  - Fatigue [Unknown]
  - Injection site pain [Unknown]
